FAERS Safety Report 9845879 (Version 1)
Quarter: 2014Q1

REPORT INFORMATION
  Report Type: Spontaneous
  Country: US (occurrence: None)
  Receive Date: 20140123
  Receipt Date: 20140123
  Transmission Date: 20141002
  Serious: Yes (Disabling)
  Sender: FDA-Public Use
  Company Number: None

PATIENT
  Age: 55 Year
  Sex: Female
  Weight: 56.7 kg

DRUGS (3)
  1. CEFUROXIME [Suspect]
     Indication: SINUSITIS
     Dosage: 250MG  1 PILL  TWICE DAILY  BY MOUTH
     Route: 048
     Dates: start: 20140121, end: 20140121
  2. ATENOLOL [Concomitant]
  3. MULTIVITAMINS [Concomitant]

REACTIONS (1)
  - Malaise [None]
